FAERS Safety Report 15058551 (Version 1)
Quarter: 2018Q2

REPORT INFORMATION
  Report Type: Spontaneous
  Country: GR (occurrence: GR)
  Receive Date: 20180625
  Receipt Date: 20180625
  Transmission Date: 20180711
  Serious: Yes (Other)
  Sender: FDA-Public Use
  Company Number: GR-BAYER-2018-114966

PATIENT
  Age: 32 Year
  Sex: Male

DRUGS (2)
  1. MOXIFLOXACIN IV [Suspect]
     Active Substance: MOXIFLOXACIN
     Indication: LUNG ABSCESS
     Dosage: UNK
     Route: 042
  2. CLINDAMYCIN. [Concomitant]
     Active Substance: CLINDAMYCIN
     Indication: LUNG ABSCESS
     Dosage: UNK
     Route: 042

REACTIONS (4)
  - Pyrexia [None]
  - Lung abscess [None]
  - Vitreous opacities [None]
  - Condition aggravated [None]
